FAERS Safety Report 10050910 (Version 3)
Quarter: 2014Q2

REPORT INFORMATION
  Report Type: Report from Study
  Country: JP (occurrence: JP)
  Receive Date: 20140401
  Receipt Date: 20140407
  Transmission Date: 20141212
  Serious: No
  Sender: FDA-Public Use
  Company Number: JP-JNJFOC-20131201554

PATIENT
  Age: 38 Year
  Sex: Male
  Weight: 96 kg

DRUGS (14)
  1. STELARA [Suspect]
     Indication: PSORIASIS
     Route: 058
     Dates: start: 20131120
  2. STELARA [Suspect]
     Indication: PSORIASIS
     Route: 058
     Dates: start: 20130828, end: 20130828
  3. STELARA [Suspect]
     Indication: PSORIASIS
     Route: 058
     Dates: start: 20130605, end: 20130605
  4. STELARA [Suspect]
     Indication: PSORIASIS
     Route: 058
     Dates: start: 20130313, end: 20130313
  5. STELARA [Suspect]
     Indication: PSORIASIS
     Route: 058
     Dates: start: 20121219, end: 20121219
  6. STELARA [Suspect]
     Indication: PSORIASIS
     Route: 058
     Dates: start: 20121121, end: 20121121
  7. ISCOTIN [Suspect]
     Indication: PROPHYLAXIS
     Route: 048
     Dates: end: 20130828
  8. NEORAL [Concomitant]
     Indication: PSORIASIS
     Route: 048
     Dates: end: 20121226
  9. EPADEL [Concomitant]
     Route: 048
  10. BEZATOL SR [Concomitant]
     Route: 048
  11. CHOLEBINE [Concomitant]
     Route: 048
  12. OXAROL [Concomitant]
     Indication: PSORIASIS
     Route: 061
     Dates: end: 20130703
  13. ANTEBATE [Concomitant]
     Indication: PSORIASIS
     Route: 061
     Dates: end: 20130703
  14. PROTOPIC [Concomitant]
     Indication: PSORIASIS
     Route: 061
     Dates: end: 20130703

REACTIONS (2)
  - Abdominal pain [Recovered/Resolved]
  - Liver function test abnormal [Recovering/Resolving]
